FAERS Safety Report 10247200 (Version 2)
Quarter: 2014Q2

REPORT INFORMATION
  Report Type: Report from Study
  Country: JP (occurrence: JP)
  Receive Date: 20140619
  Receipt Date: 20140619
  Transmission Date: 20141212
  Serious: Yes (Life-Threatening, Hospitalization, Other)
  Sender: FDA-Public Use
  Company Number: PHHY2014JP052114

PATIENT
  Age: 9 Year
  Sex: Female

DRUGS (8)
  1. CERTICAN [Suspect]
     Indication: HEART TRANSPLANT
     Dosage: 1.5 MG, DAILY
     Route: 048
     Dates: start: 20070423
  2. CERTICAN [Suspect]
     Dosage: 2 MG, DAILY
     Route: 048
     Dates: start: 20130424, end: 20130905
  3. CERTICAN [Suspect]
     Dosage: 2.25 MG, DAILY
     Route: 048
     Dates: start: 20130906
  4. PREDONINE [Concomitant]
     Indication: HEART TRANSPLANT
     Dosage: 5 MG, UNK
     Route: 048
     Dates: start: 20130424
  5. PROGRAF [Concomitant]
     Indication: HEART TRANSPLANT
     Dosage: 4 MG, UNK
     Route: 048
     Dates: start: 20130423
  6. PROGRAF [Concomitant]
     Dosage: 5 MG, UNK
     Route: 048
  7. ENALART [Concomitant]
     Dosage: 2 MG, UNK
     Route: 048
     Dates: start: 20130423
  8. WYPAX [Concomitant]
     Dosage: 0.5 MG, UNK
     Route: 048
     Dates: start: 20140313

REACTIONS (3)
  - Suicide attempt [Not Recovered/Not Resolved]
  - Stress [Unknown]
  - Fatigue [Unknown]
